FAERS Safety Report 11019033 (Version 2)
Quarter: 2015Q2

REPORT INFORMATION
  Report Type: Spontaneous
  Country: US (occurrence: US)
  Receive Date: 20150412
  Receipt Date: 20150525
  Transmission Date: 20150821
  Serious: No
  Sender: FDA-Public Use
  Company Number: US-JNJFOC-20121006111

PATIENT
  Sex: Female
  Weight: 62.4 kg

DRUGS (13)
  1. COREG [Concomitant]
     Active Substance: CARVEDILOL
     Route: 065
  2. PRAVACHOL [Concomitant]
     Active Substance: PRAVASTATIN SODIUM
     Route: 065
  3. APIDRA [Concomitant]
     Active Substance: INSULIN GLULISINE
     Route: 065
  4. LEVOTHYROXINE [Concomitant]
     Active Substance: LEVOTHYROXINE
     Route: 065
  5. COUMADIN [Concomitant]
     Active Substance: WARFARIN SODIUM
     Route: 065
  6. DIGOXIN. [Concomitant]
     Active Substance: DIGOXIN
     Route: 065
  7. LANTUS [Concomitant]
     Active Substance: INSULIN GLARGINE
     Route: 065
  8. IMIPENEM [Concomitant]
     Active Substance: IMIPENEM
     Route: 065
  9. PANTOPRAZOLE [Concomitant]
     Active Substance: PANTOPRAZOLE SODIUM
     Route: 065
  10. PREDNISONE. [Concomitant]
     Active Substance: PREDNISONE
     Route: 065
  11. RANEXA [Concomitant]
     Active Substance: RANOLAZINE
     Route: 065
  12. LEVAQUIN [Suspect]
     Active Substance: LEVOFLOXACIN
     Indication: PRODUCT USED FOR UNKNOWN INDICATION
     Route: 065
  13. LORTAB [Concomitant]
     Active Substance: ACETAMINOPHEN\HYDROCODONE BITARTRATE
     Route: 065

REACTIONS (2)
  - Dyskinesia [Unknown]
  - Muscle contractions involuntary [Not Recovered/Not Resolved]
